FAERS Safety Report 4567962-3 (Version None)
Quarter: 2005Q1

REPORT INFORMATION
  Report Type: 
  Country: None (occurrence: None)
  Receive Date: 20050128
  Receipt Date: 20030805
  Transmission Date: 20050727
  Serious: Yes (Death)
  Sender: FDA-Public Use
  Company Number: GXKR2003DE00574

PATIENT
  Age: 71 Year
  Sex: Male

DRUGS (2)
  1. IBUPROFEN [Suspect]
     Indication: OSTEOARTHRITIS
     Dosage: 600 MG, QID, ORAL
     Route: 048
  2. GINGIUM (GINKGO BILOBA EXTRACT) [Suspect]
     Indication: DIZZINESS
     Dosage: 40 MG, BID, ORAL
     Route: 048

REACTIONS (3)
  - CEREBRAL HAEMORRHAGE [None]
  - COMA [None]
  - DRUG INTERACTION [None]
